FAERS Safety Report 17407174 (Version 1)
Quarter: 2020Q1

REPORT INFORMATION
  Report Type: Spontaneous
  Country: US (occurrence: US)
  Receive Date: 20200211
  Receipt Date: 20200211
  Transmission Date: 20200409
  Serious: Yes (Hospitalization)
  Sender: FDA-Public Use
  Company Number: None

PATIENT
  Age: 21 Year
  Sex: Male
  Weight: 50.85 kg

DRUGS (2)
  1. DEPO-PROVERA [Concomitant]
     Active Substance: MEDROXYPROGESTERONE ACETATE
     Dates: start: 20191227, end: 20191227
  2. DEPO-PROVERA [Suspect]
     Active Substance: MEDROXYPROGESTERONE ACETATE
     Dosage: ?          OTHER FREQUENCY:1;?
     Route: 030

REACTIONS (4)
  - Petechiae [None]
  - Contusion [None]
  - Livedo reticularis [None]
  - Pain in extremity [None]

NARRATIVE: CASE EVENT DATE: 20191227
